FAERS Safety Report 13176416 (Version 2)
Quarter: 2017Q1

REPORT INFORMATION
  Report Type: Spontaneous
  Country: ES (occurrence: ES)
  Receive Date: 20170201
  Receipt Date: 20170324
  Transmission Date: 20170428
  Serious: Yes (Other)
  Sender: FDA-Public Use
  Company Number: ES-SAOL THERAPEUTICS-2017SAO00200

PATIENT
  Age: 47 Year
  Sex: Male

DRUGS (1)
  1. LIORESAL [Suspect]
     Active Substance: BACLOFEN
     Indication: PARAPLEGIA
     Dosage: 324.8 ?G, \DAY
     Route: 037
     Dates: start: 20161124

REACTIONS (2)
  - Medical device site ulcer [Not Recovered/Not Resolved]
  - Device extrusion [Not Recovered/Not Resolved]
